FAERS Safety Report 4283499-3 (Version None)
Quarter: 2004Q1

REPORT INFORMATION
  Report Type: 
  Country: None (occurrence: None)
  Receive Date: 20040202
  Receipt Date: 20030115
  Transmission Date: 20041129
  Serious: No
  Sender: FDA-Public Use
  Company Number: US-BRISTOL-MYERS SQUIBB COMPANY-12160818

PATIENT
  Sex: Female

DRUGS (1)
  1. ULTRAVATE [Suspect]
     Route: 061

REACTIONS (2)
  - RASH PRURITIC [None]
  - SKIN LESION [None]
